FAERS Safety Report 17809674 (Version 3)
Quarter: 2020Q3

REPORT INFORMATION
  Report Type: Report from Study
  Country: US (occurrence: US)
  Receive Date: 20200520
  Receipt Date: 20200730
  Transmission Date: 20201102
  Serious: No
  Sender: FDA-Public Use
  Company Number: US-AMGEN-USASP2020078656

PATIENT
  Age: 50 Year
  Sex: Female

DRUGS (2)
  1. COQ 10 [Concomitant]
     Active Substance: UBIDECARENONE
     Dosage: UNK
  2. REPATHA [Suspect]
     Active Substance: EVOLOCUMAB
     Indication: HYPERCHOLESTEROLAEMIA
     Dosage: 140 MILLIGRAM, Q2WK
     Route: 065
     Dates: start: 202002

REACTIONS (3)
  - Arthralgia [Recovered/Resolved]
  - Incorrect disposal of product [Unknown]
  - Back pain [Recovered/Resolved]

NARRATIVE: CASE EVENT DATE: 2020
